FAERS Safety Report 8334265-0 (Version None)
Quarter: 2012Q2

REPORT INFORMATION
  Report Type: 
  Country: None (occurrence: None)
  Receive Date: 20120503
  Receipt Date: 20120425
  Transmission Date: 20120825
  Serious: Yes (Hospitalization)
  Sender: FDA-Public Use
  Company Number: PHHY2012GR036469

PATIENT
  Age: 71 Year
  Sex: Male

DRUGS (2)
  1. RIBAVIRIN [Suspect]
     Indication: HEPATITIS VIRAL
     Dosage: UNK UKN, UNK
  2. INTERFERON [Suspect]
     Indication: HEPATITIS VIRAL
     Dosage: UNK UKN, UNK

REACTIONS (8)
  - PERITONEAL TUBERCULOSIS [None]
  - PYREXIA [None]
  - ASCITES [None]
  - GAIT DISTURBANCE [None]
  - CEREBRAL INFARCTION [None]
  - NEUTROPENIA [None]
  - WEIGHT DECREASED [None]
  - OEDEMA PERIPHERAL [None]
